FAERS Safety Report 7117872-2 (Version None)
Quarter: 2010Q4

REPORT INFORMATION
  Report Type: 
  Country: None (occurrence: None)
  Receive Date: 20101118
  Receipt Date: 20101118
  Transmission Date: 20110411
  Serious: No
  Sender: FDA-Public Use
  Company Number: None

PATIENT
  Age: 30 Year
  Sex: Female

DRUGS (1)
  1. TOPIRAMATE [Suspect]
     Dosage: 25 MG BID PO
     Route: 048
     Dates: start: 20100828, end: 20100907

REACTIONS (3)
  - PRURITUS [None]
  - URTICARIA [None]
  - VISION BLURRED [None]
